FAERS Safety Report 7528101-X (Version None)
Quarter: 2011Q2

REPORT INFORMATION
  Report Type: 
  Country: None (occurrence: None)
  Receive Date: 20110607
  Receipt Date: 20110531
  Transmission Date: 20111010
  Serious: Yes (Death, Life-Threatening, Hospitalization, Other)
  Sender: FDA-Public Use
  Company Number: US-ELI_LILLY_AND_COMPANY-US201105001875

PATIENT
  Sex: Male
  Weight: 77.098 kg

DRUGS (6)
  1. LOVASTATIN [Concomitant]
     Dosage: 40 MG, UNK
  2. THEOPHYLLINE [Concomitant]
     Dosage: 200 MG, UNK
  3. CIALIS [Suspect]
     Indication: SEXUAL DYSFUNCTION
     Dosage: 20 MG, OTHER
     Route: 048
     Dates: start: 20080801
  4. ALCOHOL [Concomitant]
  5. ALBUTEROL SULFATE AUTOHALER [Concomitant]
     Dosage: UNK, PRN
     Route: 055
  6. LOTREL [Concomitant]
     Dosage: 1 DF, UNK

REACTIONS (6)
  - CARDIAC DISORDER [None]
  - RESPIRATORY FAILURE [None]
  - CARDIAC FAILURE CONGESTIVE [None]
  - PLEURAL EFFUSION [None]
  - LUNG DISORDER [None]
  - PNEUMONIA [None]
